FAERS Safety Report 10155342 (Version 1)
Quarter: 2014Q2

REPORT INFORMATION
  Report Type: Spontaneous
  Country: US (occurrence: US)
  Receive Date: 20140506
  Receipt Date: 20140506
  Transmission Date: 20141212
  Serious: Yes (Hospitalization)
  Sender: FDA-Public Use
  Company Number: US-SHIRE-US201401628

PATIENT
  Age: 64 Year
  Sex: Female
  Weight: 86.62 kg

DRUGS (1)
  1. FOSRENOL [Suspect]
     Indication: BLOOD PHOSPHORUS ABNORMAL
     Dosage: UNK, 3X/DAY:TID (WITH MEALS)
     Route: 048

REACTIONS (2)
  - Dyspnoea [Not Recovered/Not Resolved]
  - Chest pain [Not Recovered/Not Resolved]
